FAERS Safety Report 4776914-X (Version None)
Quarter: 2005Q3

REPORT INFORMATION
  Report Type: 
  Country: None (occurrence: None)
  Receive Date: 20050923
  Receipt Date: 20050921
  Transmission Date: 20060218
  Serious: Yes (Other)
  Sender: FDA-Public Use
  Company Number: DK-SANOFI-SYNTHELABO-A01200506393

PATIENT
  Age: 58 Year
  Sex: Female

DRUGS (1)
  1. PLAQUENIL [Suspect]
     Route: 048
     Dates: start: 19970101, end: 20050101

REACTIONS (1)
  - MACULAR DEGENERATION [None]
